FAERS Safety Report 17983714 (Version 2)
Quarter: 2020Q3

REPORT INFORMATION
  Report Type: Spontaneous
  Country: PL (occurrence: PL)
  Receive Date: 20200706
  Receipt Date: 20200713
  Transmission Date: 20201103
  Serious: Yes (Death, Life-Threatening, Other)
  Sender: FDA-Public Use
  Company Number: PL-ACCORD-185536

PATIENT
  Age: 68 Year
  Sex: Male

DRUGS (22)
  1. BISOPROLOL [Suspect]
     Active Substance: BISOPROLOL
     Indication: HYPERTENSION
  2. IPRATROPIUM [Suspect]
     Active Substance: IPRATROPIUM
     Indication: CHRONIC OBSTRUCTIVE PULMONARY DISEASE
  3. LEVOTHYROXINE. [Suspect]
     Active Substance: LEVOTHYROXINE
     Indication: HYPOTHYROIDISM
     Dosage: UNK
  4. ACETYLSALICYLIC ACID [Suspect]
     Active Substance: ASPIRIN
     Indication: PRODUCT USED FOR UNKNOWN INDICATION
     Dosage: 300 MG IS EQUAL TO SINGLE LOADING DOSE
     Route: 065
     Dates: start: 20160812
  5. EPINEPHRINE. [Suspect]
     Active Substance: EPINEPHRINE
     Indication: POST PROCEDURAL HAEMORRHAGE
     Dosage: INCREASING DOSES
     Route: 065
  6. DABIGATRAN/DABIGATRAN ETEXILATE [Suspect]
     Active Substance: DABIGATRAN ETEXILATE
     Indication: PRODUCT USED FOR UNKNOWN INDICATION
     Dosage: 150 MG, 2X PER DAY
     Dates: start: 201601
  7. DABIGATRAN/DABIGATRAN ETEXILATE [Suspect]
     Active Substance: DABIGATRAN ETEXILATE
     Indication: ATRIAL FIBRILLATION
     Dosage: 150 MG, BID
     Dates: start: 201603
  8. FORMOTEROL [Suspect]
     Active Substance: FORMOTEROL
     Indication: CHRONIC OBSTRUCTIVE PULMONARY DISEASE
     Dosage: UNK
     Route: 055
  9. XARELTO [Suspect]
     Active Substance: RIVAROXABAN
     Indication: PRODUCT USED FOR UNKNOWN INDICATION
     Dosage: 20 MG, PER DAY, STRENGTH: 20 MG
     Dates: start: 201510
  10. BERODUAL [Suspect]
     Active Substance: FENOTEROL HYDROBROMIDE\IPRATROPIUM BROMIDE
     Indication: CHRONIC OBSTRUCTIVE PULMONARY DISEASE
     Route: 055
  11. DABIGATRAN/DABIGATRAN ETEXILATE [Suspect]
     Active Substance: DABIGATRAN ETEXILATE
     Indication: ATRIAL FIBRILLATION
     Dosage: 110 MG, 2X PER DAY
     Dates: start: 201601
  12. PRAXBIND [Suspect]
     Active Substance: IDARUCIZUMAB
     Dosage: 2.5 G, 2X PER DAY
  13. IPRATROPIUM [Concomitant]
     Active Substance: IPRATROPIUM
     Indication: CHRONIC OBSTRUCTIVE PULMONARY DISEASE
     Route: 055
  14. CLOPIDOGREL [Suspect]
     Active Substance: CLOPIDOGREL BISULFATE
     Indication: PRODUCT USED FOR UNKNOWN INDICATION
     Dosage: 600 MG IS EQUAL TO SINGLE LOADING DOSE
     Route: 065
     Dates: start: 20160812, end: 201608
  15. PRAXBIND [Concomitant]
     Active Substance: IDARUCIZUMAB
     Dosage: 2.5 G TWICE WITHIN 10 MINUTES
     Dates: start: 201608
  16. PRADAXA [Suspect]
     Active Substance: DABIGATRAN ETEXILATE MESYLATE
     Indication: ATRIAL FIBRILLATION
     Route: 065
     Dates: start: 201601
  17. IDARUCIZUMAB [Concomitant]
     Active Substance: IDARUCIZUMAB
     Indication: PRODUCT USED FOR UNKNOWN INDICATION
     Dosage: 2.5 MILLIGRAM (X2) WITHIN 10 MIN
     Route: 065
  18. PROTAMINE [Suspect]
     Active Substance: PROTAMINE
     Indication: POST PROCEDURAL HAEMORRHAGE
     Route: 065
     Dates: start: 201608
  19. LACIDIPINE [Suspect]
     Active Substance: LACIDIPINE
     Indication: HYPERTENSION
     Dosage: UNK
  20. HEPARIN [Suspect]
     Active Substance: HEPARIN SODIUM
     Indication: PRODUCT USED FOR UNKNOWN INDICATION
     Route: 042
     Dates: start: 20160812
  21. NOREPINEPHRINE. [Suspect]
     Active Substance: NOREPINEPHRINE
     Indication: POST PROCEDURAL HAEMORRHAGE
     Dosage: INCREASING DOSES
     Route: 065
  22. PRAXBIND [Suspect]
     Active Substance: IDARUCIZUMAB
     Dosage: 2.5 G, 2X PER DAY

REACTIONS (12)
  - Epistaxis [Fatal]
  - Shock [Fatal]
  - Acute coronary syndrome [Fatal]
  - Procedural haemorrhage [Fatal]
  - Anaemia [Fatal]
  - Product administration error [Fatal]
  - Aortic dissection [Fatal]
  - Shock haemorrhagic [Fatal]
  - Haemorrhage [Fatal]
  - Haematoma [Fatal]
  - Post procedural haemorrhage [Fatal]
  - Drug ineffective [Fatal]

NARRATIVE: CASE EVENT DATE: 201608
